FAERS Safety Report 13030826 (Version 1)
Quarter: 2016Q4

REPORT INFORMATION
  Report Type: Spontaneous
  Country: US (occurrence: US)
  Receive Date: 20161215
  Receipt Date: 20161215
  Transmission Date: 20170207
  Serious: No
  Sender: FDA-Public Use
  Company Number: US-BAUSCH-BL-2016-009653

PATIENT
  Sex: Female
  Weight: 68.1 kg

DRUGS (1)
  1. APRISO [Suspect]
     Active Substance: MESALAMINE
     Indication: COLITIS ULCERATIVE
     Route: 048
     Dates: start: 201601, end: 20160411

REACTIONS (2)
  - Vision blurred [Not Recovered/Not Resolved]
  - Retinal scar [Not Recovered/Not Resolved]

NARRATIVE: CASE EVENT DATE: 2016
